FAERS Safety Report 21064803 (Version 2)
Quarter: 2022Q3

REPORT INFORMATION
  Report Type: Report from Study
  Country: US (occurrence: None)
  Receive Date: 20220711
  Receipt Date: 20220719
  Transmission Date: 20221027
  Serious: Yes (Hospitalization)
  Sender: FDA-Public Use
  Company Number: US-ROCHE-3134580

PATIENT
  Age: 45 Year
  Sex: Male
  Weight: 114.3 kg

DRUGS (6)
  1. ATEZOLIZUMAB [Suspect]
     Active Substance: ATEZOLIZUMAB
     Indication: Bile duct adenocarcinoma
     Dosage: 08/JUN/2022,MOST RECENTDISE WAS ADMINISTERED
     Route: 041
  2. ATEZOLIZUMAB [Suspect]
     Active Substance: ATEZOLIZUMAB
     Indication: Cholangiocarcinoma
  3. COBIMETINIB [Suspect]
     Active Substance: COBIMETINIB
     Indication: Bile duct adenocarcinoma
     Route: 048
  4. COBIMETINIB [Suspect]
     Active Substance: COBIMETINIB
     Indication: Cholangiocarcinoma
  5. VARLILUMAB [Suspect]
     Active Substance: VARLILUMAB
     Indication: Cholangiocarcinoma
     Dosage: 08/JUN/2022,MOST RECENTDISE WAS ADMINISTERED
     Route: 042
  6. VARLILUMAB [Suspect]
     Active Substance: VARLILUMAB
     Indication: Bile duct adenocarcinoma

REACTIONS (2)
  - Encephalopathy [Recovered/Resolved]
  - Hyperbilirubinaemia [Unknown]

NARRATIVE: CASE EVENT DATE: 20220627
